FAERS Safety Report 24139651 (Version 1)
Quarter: 2024Q3

REPORT INFORMATION
  Report Type: Other
  Country: FR (occurrence: FR)
  Receive Date: 20240726
  Receipt Date: 20240726
  Transmission Date: 20241016
  Serious: Yes (Congenital Anomaly)
  Sender: ZYDUS PHARM
  Company Number: None

PATIENT

DRUGS (1)
  1. VENLAFAXINE [Suspect]
     Active Substance: VENLAFAXINE HYDROCHLORIDE
     Indication: Burnout syndrome
     Dosage: 37.5 MILLIGRAM, QD
     Route: 064
     Dates: start: 20230817, end: 20240529

REACTIONS (1)
  - Diaphragmatic hernia [Recovered/Resolved with Sequelae]

NARRATIVE: CASE EVENT DATE: 20240529
